FAERS Safety Report 24253242 (Version 1)
Quarter: 2024Q3

REPORT INFORMATION
  Report Type: Spontaneous
  Country: CA (occurrence: CA)
  Receive Date: 20240827
  Receipt Date: 20240827
  Transmission Date: 20241016
  Serious: Yes (Life-Threatening, Hospitalization, Other)
  Sender: AUROBINDO
  Company Number: CA-AUROBINDO-AUR-APL-2024-042005

PATIENT
  Age: 59 Year
  Sex: Female

DRUGS (2)
  1. OLANZAPINE [Suspect]
     Active Substance: OLANZAPINE
     Indication: Anxiety
     Dosage: UNK
     Route: 050
  2. AVONEX [Suspect]
     Active Substance: INTERFERON BETA-1A
     Indication: Relapsing-remitting multiple sclerosis
     Dosage: 30 MICROGRAM, EVERY WEEK
     Route: 050

REACTIONS (15)
  - Abdominal discomfort [Recovered/Resolved]
  - Aneurysm [Recovered/Resolved]
  - Aneurysm ruptured [Recovered/Resolved]
  - Anxiety [Recovered/Resolved]
  - Brain injury [Recovered/Resolved]
  - Colitis ischaemic [Recovered/Resolved]
  - Crying [Recovered/Resolved]
  - Dysphagia [Recovered/Resolved]
  - Gastrointestinal procedural complication [Recovered/Resolved]
  - Gastrooesophageal reflux disease [Recovered/Resolved]
  - Pharyngeal mass [Recovered/Resolved]
  - Procedural complication [Recovered/Resolved]
  - Productive cough [Recovered/Resolved]
  - Weight increased [Recovered/Resolved]
  - Multiple sclerosis [Recovered/Resolved]
